FAERS Safety Report 12601177 (Version 2)
Quarter: 2016Q3

REPORT INFORMATION
  Report Type: Spontaneous
  Country: US (occurrence: US)
  Receive Date: 20160728
  Receipt Date: 20160916
  Transmission Date: 20161109
  Serious: No
  Sender: FDA-Public Use
  Company Number: US-BRISTOL-MYERS SQUIBB COMPANY-BMS-2016-059926

PATIENT
  Sex: Female

DRUGS (1)
  1. ELIQUIS [Suspect]
     Active Substance: APIXABAN
     Indication: PROTEIN S DEFICIENCY
     Dosage: 2.5 MG, BID
     Route: 048
     Dates: end: 20160515

REACTIONS (2)
  - Product use issue [Unknown]
  - Malaise [Recovering/Resolving]
